FAERS Safety Report 9203184 (Version 1)
Quarter: 2013Q1

REPORT INFORMATION
  Report Type: Spontaneous
  Country: JP (occurrence: None)
  Receive Date: 20130329
  Receipt Date: 20130329
  Transmission Date: 20140127
  Serious: Yes (Death, Hospitalization)
  Sender: FDA-Public Use
  Company Number: IPC201303-000097

PATIENT
  Sex: Male

DRUGS (18)
  1. ALLOPURINOL [Suspect]
     Indication: BLOOD URIC ACID INCREASED
     Dosage: 100-300 MG DAILY
  2. TELAPREVIR [Suspect]
  3. RIBAVIRIN [Suspect]
  4. PEGINTERFERON ALFA-2B [Suspect]
  5. MEFENAMIC ACID [Suspect]
     Route: 048
  6. REBAMIPIDE [Suspect]
     Route: 048
  7. LOXOPROFEN [Concomitant]
  8. DICLOFENAC SODIUM [Concomitant]
  9. BIFIDOBACTERIUM GRANULAR POWDER [Concomitant]
  10. PREDNISOLONE [Concomitant]
  11. ETIZOLAM [Concomitant]
  12. LOPERAMIDE HYDROCHLORIDE [Concomitant]
  13. HYDROCORTISONE [Concomitant]
  14. BETAMETHASONE/GENTAMICIN (GENTAMICIN) (GENTAMICIN) [Concomitant]
  15. DIPHENHYDRAMINE CREAM (DIPHENHYDRAMINE) (DIPHENHYDRAMINE) [Concomitant]
  16. KETOPROFEN [Concomitant]
  17. BROTIZOLAM (BROTIZOLAM) (BROTIZOLAM) [Concomitant]
  18. GLYCYRRHIZINATE (GLYCYRRHIZINATE) (GLYCYRRHIZINATE) [Concomitant]

REACTIONS (10)
  - Toxic epidermal necrolysis [None]
  - Diarrhoea [None]
  - Decreased appetite [None]
  - Multi-organ failure [None]
  - Hepatic function abnormal [None]
  - Pyrexia [None]
  - Malaise [None]
  - Blood uric acid increased [None]
  - Renal impairment [None]
  - Injection site ulcer [None]
